FAERS Safety Report 8916414 (Version 2)
Quarter: 2012Q4

REPORT INFORMATION
  Report Type: Report from Study
  Country: GB (occurrence: GB)
  Receive Date: 20121120
  Receipt Date: 20121129
  Transmission Date: 20130627
  Serious: Yes (Hospitalization)
  Sender: FDA-Public Use
  Company Number: GB-PFIZER INC-2012286509

PATIENT
  Age: 16 Year
  Sex: Female
  Weight: 66 kg

DRUGS (27)
  1. DOXORUBICIN HCL [Suspect]
     Indication: RHABDOMYOSARCOMA
     Dosage: 60 mg, cyclic, twice per cycle
     Route: 042
     Dates: start: 20100618
  2. VINCRISTINE SULFATE [Suspect]
     Indication: RHABDOMYOSARCOMA
     Dosage: 2 mg, cyclic, once per cycle
     Route: 042
     Dates: start: 20100618
  3. DACTINOMYCIN [Suspect]
     Indication: RHABDOMYOSARCOMA
     Dosage: 2 mg, cyclic, once per cycle
     Route: 042
     Dates: start: 20100618
  4. IFOSFAMIDE [Suspect]
     Indication: RHABDOMYOSARCOMA
     Dosage: 6 g, cyclic, twice per cycle
     Route: 042
     Dates: start: 20100618
  5. LEVOMEPROMAZINE [Concomitant]
     Dosage: 6 mg, UNK
     Dates: start: 20100924, end: 20100929
  6. FLUCONAZOLE [Concomitant]
     Dosage: 150 mg, UNK
     Dates: start: 20100924
  7. FENTANYL CITRATE [Concomitant]
     Dosage: 50 ug, every 3 days
     Dates: start: 20100713
  8. DEXAMETHASONE [Concomitant]
     Dosage: 24 mg, UNK
     Dates: start: 20100713, end: 20100930
  9. MAGNESIUM ASPARTATE [Concomitant]
     Dosage: 20 mmol, UNK
     Dates: start: 20100612
  10. PHOSPHATE-SANDOZ [Concomitant]
     Dosage: UNK
     Dates: start: 20100717
  11. AMITRIPTYLINE [Concomitant]
     Dosage: 25 mg, UNK
     Dates: start: 20101015
  12. SEVREDOL [Concomitant]
     Dosage: 20 mg, every hours, as needed
     Dates: start: 20100617
  13. GRANISETRON [Concomitant]
     Dosage: 1 mg, UNK
     Dates: start: 20100620
  14. CALCIUM CARBONATE [Concomitant]
     Dosage: 2.5 g, UNK
     Dates: start: 20100716
  15. TAZOCIN [Concomitant]
     Dosage: 18 g, UNK
     Dates: start: 20100722
  16. CO-TRIMOXAZOLE [Concomitant]
     Dosage: 960 mg, UNK
     Dates: start: 20100621
  17. SENNA [Concomitant]
     Dosage: 15 mg, UNK
     Dates: start: 20100621
  18. ONDANSETRON [Concomitant]
     Dosage: 24 mg, UNK
     Dates: start: 20100722
  19. LACTULOSE [Concomitant]
     Dosage: 15 mg, UNK
     Dates: start: 20100725
  20. NABILONE [Concomitant]
     Dosage: 3 mg, UNK
     Dates: start: 20100714
  21. OMEPRAZOLE [Concomitant]
     Dosage: 20 mg, UNK
     Dates: start: 20100713
  22. METOCLOPRAMIDE [Concomitant]
     Dosage: 30 mg, UNK
     Dates: start: 20100614
  23. PARACETAMOL [Concomitant]
     Dosage: 4 g, UNK
     Dates: start: 20100909
  24. PHENYLEPHRINE HYDROCHLORIDE/TROPICAMIDE [Concomitant]
     Dosage: UNK
     Dates: start: 20100717
  25. GABAPENTIN [Concomitant]
     Dosage: 1500 mg, UNK
     Dates: start: 20100909
  26. SANDO K [Concomitant]
     Dosage: 4 DF, UNK
     Dates: start: 20100724
  27. TROPICAMIDE [Concomitant]

REACTIONS (2)
  - Febrile neutropenia [Recovered/Resolved]
  - Presyncope [Recovered/Resolved]
